FAERS Safety Report 11055308 (Version 5)
Quarter: 2015Q4

REPORT INFORMATION
  Report Type: Spontaneous
  Country: US (occurrence: US)
  Receive Date: 20150422
  Receipt Date: 20151001
  Transmission Date: 20160304
  Serious: No
  Sender: FDA-Public Use
  Company Number: US-PFIZER INC-2015130022

PATIENT
  Age: 61 Year
  Sex: Female

DRUGS (36)
  1. NEURONTIN [Suspect]
     Active Substance: GABAPENTIN
     Indication: PAIN
     Dosage: 300 MG, UNK
     Dates: start: 20031102
  2. NEURONTIN [Suspect]
     Active Substance: GABAPENTIN
     Dosage: 300 MG, 1X/DAY
     Dates: start: 2003, end: 2014
  3. NEURONTIN [Suspect]
     Active Substance: GABAPENTIN
     Dosage: 900 MG, 1X/DAY
     Dates: start: 2003
  4. AMITRIPTYLINE [Concomitant]
     Active Substance: AMITRIPTYLINE
     Indication: SLEEP DISORDER
     Dosage: 25 MG, AS NEEDED
  5. IBUPROFEN. [Suspect]
     Active Substance: IBUPROFEN
     Indication: PAIN
     Dosage: 600 MG, AS NEEDED (AT NIGHT)
     Dates: start: 2005
  6. CAPZASIN HP ARTHRITIS PAIN RELIEF [Suspect]
     Active Substance: CAPSAICIN
     Indication: NEURALGIA
     Dosage: 1 %, AS NEEDED
     Dates: start: 2004
  7. VITAMIN E [Concomitant]
     Active Substance: .ALPHA.-TOCOPHEROL
     Dosage: 400 IU, DAILY
  8. ASPIRIN. [Concomitant]
     Active Substance: ASPIRIN
     Dosage: 81 MG, ALTERNATE DAY
  9. BENADRYL [Suspect]
     Active Substance: DIPHENHYDRAMINE HYDROCHLORIDE
     Indication: SWELLING
     Dosage: 2 %, AS NEEDED
     Dates: start: 2004, end: 2004
  10. CARBAMAZEPINE. [Suspect]
     Active Substance: CARBAMAZEPINE
     Dosage: 200MG IN AM 400MG BEDTIME
     Dates: start: 2004, end: 2004
  11. CARBAMAZEPINE. [Suspect]
     Active Substance: CARBAMAZEPINE
     Dosage: 200 MG MORNING AND 400 MG EVENING
     Dates: start: 20100630
  12. OXYCODONE [Concomitant]
     Active Substance: OXYCODONE
     Dosage: 5/325MG
     Dates: start: 20031120
  13. IBUPROFEN. [Suspect]
     Active Substance: IBUPROFEN
     Indication: NEURALGIA
  14. VALACICLOVIR [Suspect]
     Active Substance: VALACYCLOVIR HYDROCHLORIDE
     Indication: HERPES ZOSTER
     Dosage: UNK, 1X/DAY
     Route: 048
     Dates: start: 20031102, end: 20031109
  15. FAMVIR [Suspect]
     Active Substance: FAMCICLOVIR
     Indication: NEURALGIA
     Dosage: 500 MG, ONCE A DAY
     Dates: start: 20031120, end: 20031129
  16. CAPZASIN HP ARTHRITIS PAIN RELIEF [Suspect]
     Active Substance: CAPSAICIN
     Indication: PAIN
  17. OXYCODONE [Concomitant]
     Active Substance: OXYCODONE
     Dosage: 5/325MG
     Dates: start: 20031208
  18. LISINOPRIL AND HYDROCHLOROTHIAZIDE [Concomitant]
     Active Substance: HYDROCHLOROTHIAZIDE\LISINOPRIL
     Dosage: 12.5 HCTZ/10 LISINOPRIL,UNK
  19. NEURONTIN [Suspect]
     Active Substance: GABAPENTIN
     Dosage: 900 MG, DAILY
     Dates: start: 2003, end: 2014
  20. VALACICLOVIR [Suspect]
     Active Substance: VALACYCLOVIR HYDROCHLORIDE
     Indication: NEURALGIA
  21. CARBAMAZEPINE. [Suspect]
     Active Substance: CARBAMAZEPINE
     Indication: NEURALGIA
     Dosage: 200 AND AMP. 400
  22. LIDODERM PATCHES 5% [Concomitant]
     Dosage: UNK
     Dates: start: 20040109
  23. CALCIUM WITH VITAMIN D [Concomitant]
     Active Substance: CALCIUM\VITAMIN D
     Dosage: 1500 MG, DAILY
  24. OXYCONTIN [Suspect]
     Active Substance: OXYCODONE HYDROCHLORIDE
     Indication: NEURALGIA
     Dosage: 100 MG, UNK
     Dates: start: 20031102
  25. OXYCONTIN [Suspect]
     Active Substance: OXYCODONE HYDROCHLORIDE
     Dosage: 5/325, ONCE A DAY
     Dates: start: 2004, end: 2004
  26. TRIAMTERENE AND HYDROCHLOROTHIAZIDE [Concomitant]
     Active Substance: HYDROCHLOROTHIAZIDE\TRIAMTERENE
     Indication: BLOOD PRESSURE ABNORMAL
     Dosage: 37.5/25, 1/2 TABLET DAILY PM
  27. LOVASTATIN. [Concomitant]
     Active Substance: LOVASTATIN
     Indication: BLOOD CHOLESTEROL ABNORMAL
     Dosage: 20 MG, DAILY PM
  28. OCUVITE [Concomitant]
     Active Substance: VITAMINS
     Dosage: UNK
  29. LYRICA [Suspect]
     Active Substance: PREGABALIN
     Indication: NEURALGIA
  30. NEURONTIN [Suspect]
     Active Substance: GABAPENTIN
     Dosage: 600 MG IN THE MORNING, 600 MG IN AFTERNOON, 600 PLUS (1) 300 MG AT BED TIME
     Dates: start: 20031208
  31. NEURONTIN [Suspect]
     Active Substance: GABAPENTIN
     Dosage: 900 MG, 1X/DAY
     Dates: start: 2015, end: 2015
  32. TRAMADOL HCL [Suspect]
     Active Substance: TRAMADOL HYDROCHLORIDE
     Indication: PAIN
     Dosage: 50 MG, AS NEEDED
  33. LYRICA [Suspect]
     Active Substance: PREGABALIN
     Indication: HERPES ZOSTER
     Dosage: 100 MG, 2X/DAY
     Dates: start: 2015
  34. NEURONTIN [Suspect]
     Active Substance: GABAPENTIN
     Indication: NEURALGIA
     Dosage: 300 MG, UNK
     Dates: start: 20031120
  35. LIDOCAINE HCL [Suspect]
     Active Substance: LIDOCAINE HYDROCHLORIDE
     Indication: NEURALGIA
     Dosage: 2 %, FOR 3 DAY
     Dates: start: 20031120, end: 2004
  36. FAMVIR [Suspect]
     Active Substance: FAMCICLOVIR
     Dosage: 500 MG, UNK
     Dates: start: 20031208

REACTIONS (1)
  - Drug ineffective [Not Recovered/Not Resolved]

NARRATIVE: CASE EVENT DATE: 20031102
